FAERS Safety Report 12605885 (Version 3)
Quarter: 2016Q3

REPORT INFORMATION
  Report Type: Spontaneous
  Country: JP (occurrence: JP)
  Receive Date: 20160729
  Receipt Date: 20160916
  Transmission Date: 20161109
  Serious: Yes (Hospitalization)
  Sender: FDA-Public Use
  Company Number: JP-AMGEN-JPNSP2016084488

PATIENT
  Age: 76 Year
  Sex: Female
  Weight: 44 kg

DRUGS (15)
  1. RANMARK [Suspect]
     Active Substance: DENOSUMAB
     Indication: METASTASES TO BONE
     Dosage: 120 MG, UNK
     Route: 058
     Dates: start: 20160603, end: 20160603
  2. DENOTAS [Suspect]
     Active Substance: CALCIUM CARBONATE\CHOLECALCIFEROL\MAGNESIUM CARBONATE
     Indication: HYPOCALCAEMIA
     Dosage: 2 DF, QD
     Route: 048
     Dates: start: 20160603, end: 20160701
  3. ALOSITOL [Concomitant]
     Active Substance: ALLOPURINOL
     Indication: HYPERURICAEMIA
     Dosage: 100 MG, QD
     Route: 048
     Dates: start: 20160608, end: 20160701
  4. LOPEMIN [Concomitant]
     Active Substance: LOPERAMIDE HYDROCHLORIDE
     Indication: DIARRHOEA
     Dosage: 1 MG, TID
     Route: 048
     Dates: start: 20160525
  5. LACB-R [Concomitant]
     Indication: DIARRHOEA
     Dosage: 1 G, TID
     Route: 048
     Dates: start: 20160618, end: 20160701
  6. XYZAL [Concomitant]
     Active Substance: LEVOCETIRIZINE DIHYDROCHLORIDE
     Indication: RASH
     Dosage: 5 MG, QD
     Route: 048
     Dates: start: 20160624, end: 20160701
  7. GILOTRIF [Suspect]
     Active Substance: AFATINIB
     Indication: LUNG NEOPLASM MALIGNANT
     Dosage: 20 - 40 MG, QD
     Route: 042
     Dates: start: 20160525
  8. NEUTROGIN [Concomitant]
     Active Substance: LENOGRASTIM
     Indication: GRANULOCYTOPENIA
     Dosage: UNK
     Route: 065
     Dates: start: 20160707, end: 20160710
  9. EDIROL [Concomitant]
     Active Substance: ELDECALCITOL
     Indication: HYPOCALCAEMIA
     Dosage: 0.75 MUG, QD
     Route: 048
     Dates: start: 20160618, end: 20160701
  10. ZYRTEC [Concomitant]
     Active Substance: CETIRIZINE HYDROCHLORIDE
     Indication: RASH
     Dosage: 10 MG, QD
     Route: 048
     Dates: start: 20160618, end: 20160621
  11. SLOW-K [Concomitant]
     Active Substance: POTASSIUM CHLORIDE
     Indication: HYPOKALAEMIA
     Dosage: 1200 MG, BID
     Route: 048
     Dates: start: 20160624, end: 20160701
  12. ADETPHOS [Concomitant]
     Active Substance: ADENOSINE TRIPHOSPHATE
     Indication: DEAFNESS
     Dosage: 100 MG, TID
     Route: 048
     Dates: start: 20160622, end: 20160628
  13. ASPARA-CA [Concomitant]
     Active Substance: CALCIUM ASPARTATE
     Indication: HYPOCALCAEMIA
     Dosage: 600 MG, TID
     Route: 048
     Dates: start: 20160624, end: 20160701
  14. GOREISAN [Concomitant]
     Active Substance: HERBALS
     Indication: DEAFNESS
     Dosage: 2.5 G, TID
     Route: 048
     Dates: start: 20160622, end: 20160628
  15. PREDONINE [Concomitant]
     Active Substance: PREDNISOLONE\PREDNISOLONE ACETATE\PREDNISOLONE SODIUM SUCCINATE
     Indication: STEVENS-JOHNSON SYNDROME
     Dosage: UNK
     Route: 065
     Dates: start: 20160701

REACTIONS (5)
  - Diarrhoea [Recovered/Resolved]
  - Granulocytopenia [Recovered/Resolved]
  - Blood creatinine increased [Recovered/Resolved]
  - Toxic epidermal necrolysis [Recovered/Resolved]
  - Hypocalcaemia [Recovering/Resolving]

NARRATIVE: CASE EVENT DATE: 201606
